FAERS Safety Report 4288556-3 (Version None)
Quarter: 2004Q1

REPORT INFORMATION
  Report Type: 
  Country: None (occurrence: None)
  Receive Date: 20040205
  Receipt Date: 20040126
  Transmission Date: 20041129
  Serious: Yes (Life-Threatening, Hospitalization)
  Sender: FDA-Public Use
  Company Number: 2004SE00368

PATIENT

DRUGS (6)
  1. BLOPRESS [Suspect]
     Indication: HYPERTENSION
     Dosage: 8 MG DAILY PO
     Route: 048
     Dates: end: 20040101
  2. MENATETRENONE [Concomitant]
  3. FERROUS CITRATE [Concomitant]
  4. TICLOPIDINE HYDROCHLORIDE [Concomitant]
  5. AMLODIPINE BESYLATE [Concomitant]
  6. CLARITHROMYCIN [Suspect]

REACTIONS (3)
  - MULTI-ORGAN FAILURE [None]
  - RHABDOMYOLYSIS [None]
  - SHOCK [None]
